FAERS Safety Report 10562972 (Version 1)
Quarter: 2014Q4

REPORT INFORMATION
  Report Type: Spontaneous
  Country: US (occurrence: None)
  Receive Date: 20141103
  Receipt Date: 20141103
  Transmission Date: 20150529
  Serious: Yes (Life-Threatening, Hospitalization, Disabling)
  Sender: FDA-Public Use
  Company Number: None

PATIENT
  Age: 27 Year
  Sex: Female
  Weight: 56.7 kg

DRUGS (1)
  1. NUVARING [Suspect]
     Active Substance: ETHINYL ESTRADIOL\ETONOGESTREL
     Indication: CONTRACEPTION
     Dosage: NUVARING
     Route: 067
     Dates: start: 20090101, end: 20140907

REACTIONS (6)
  - Seizure [None]
  - Lumbar vertebral fracture [None]
  - Spinal fracture [None]
  - Migraine [None]
  - Headache [None]
  - Fall [None]

NARRATIVE: CASE EVENT DATE: 20140907
